FAERS Safety Report 10185449 (Version 1)
Quarter: 2014Q2

REPORT INFORMATION
  Report Type: Spontaneous
  Country: US (occurrence: US)
  Receive Date: 20140521
  Receipt Date: 20140521
  Transmission Date: 20141212
  Serious: No
  Sender: FDA-Public Use
  Company Number: US-PFIZER INC-2014138107

PATIENT
  Age: 65 Year
  Sex: Female

DRUGS (2)
  1. ZOLOFT [Suspect]
     Indication: MAJOR DEPRESSION
     Dosage: UNK
     Dates: start: 2014
  2. AMITRIPTYLINE [Suspect]
     Indication: MAJOR DEPRESSION
     Dosage: 30 MG, 1X/DAY AT NIGHT
     Dates: start: 2014

REACTIONS (4)
  - Drug ineffective [Unknown]
  - Apathy [Unknown]
  - Increased appetite [Unknown]
  - Activities of daily living impaired [Unknown]
